FAERS Safety Report 9366834 (Version 1)
Quarter: 2013Q2

REPORT INFORMATION
  Report Type: Spontaneous
  Country: FR (occurrence: FR)
  Receive Date: 20130625
  Receipt Date: 20130625
  Transmission Date: 20140414
  Serious: Yes (Hospitalization)
  Sender: FDA-Public Use
  Company Number: FR-TEVA-415102ISR

PATIENT
  Sex: Female

DRUGS (1)
  1. FUROSEMIDE TEVA 40 MG [Suspect]
     Dosage: 5 TABLETS IN TOTAL
     Route: 048

REACTIONS (3)
  - Pulmonary oedema [Unknown]
  - Dysuria [Unknown]
  - Fatigue [Unknown]
